FAERS Safety Report 8797575 (Version 2)
Quarter: 2015Q1

REPORT INFORMATION
  Report Type: Report from Study
  Country: US (occurrence: US)
  Receive Date: 20120919
  Receipt Date: 20150227
  Transmission Date: 20150721
  Serious: Yes (Death)
  Sender: FDA-Public Use
  Company Number: US-ROCHE-1098238

PATIENT
  Sex: Male
  Weight: 100 kg

DRUGS (12)
  1. NEUMEGA [Concomitant]
     Active Substance: OPRELVEKIN
     Route: 065
  2. FILGRASTIM [Concomitant]
     Active Substance: FILGRASTIM
     Route: 065
  3. NOVEL ERYTHROPOIESIS STIMULATING PROTEIN [Concomitant]
     Dosage: 200 UNIT NOT REPORTED
     Route: 065
  4. TAXOTERE [Concomitant]
     Active Substance: DOCETAXEL
     Route: 065
  5. VITAMIN B12 [Concomitant]
     Active Substance: CYANOCOBALAMIN
     Dosage: 1000 UNIT NOT REPORTED
     Route: 065
  6. ZOMETA [Concomitant]
     Active Substance: ZOLEDRONIC ACID
     Dosage: 4 UNIT NOT REPORTED
     Route: 065
  7. CARBOPLATIN. [Concomitant]
     Active Substance: CARBOPLATIN
     Route: 065
  8. EMCYT [Concomitant]
     Active Substance: ESTRAMUSTINE PHOSPHATE SODIUM
  9. TAXOL [Concomitant]
     Active Substance: PACLITAXEL
  10. DECADRON [Concomitant]
     Active Substance: DEXAMETHASONE
     Route: 065
  11. PAMIDRONATE [Concomitant]
     Active Substance: PAMIDRONATE DISODIUM
     Route: 065
  12. AVASTIN [Suspect]
     Active Substance: BEVACIZUMAB
     Indication: PROSTATE CANCER
     Route: 042
     Dates: start: 20001101

REACTIONS (2)
  - Off label use [Unknown]
  - Prostate cancer [Fatal]
